FAERS Safety Report 6508011-7 (Version None)
Quarter: 2009Q4

REPORT INFORMATION
  Report Type: 
  Country: None (occurrence: None)
  Receive Date: 20091210
  Receipt Date: 20090915
  Transmission Date: 20100525
  Serious: Yes (Hospitalization)
  Sender: FDA-Public Use
  Company Number: CIP09002609

PATIENT
  Age: 77 Year
  Sex: Female

DRUGS (2)
  1. ACTONEL [Suspect]
     Dosage: 150 MG, ORAL
     Route: 048
     Dates: start: 20090601
  2. ALL OTHER THERAPEUTIC PRODUCTS [Concomitant]

REACTIONS (4)
  - ADVERSE DRUG REACTION [None]
  - FATIGUE [None]
  - MALAISE [None]
  - PAIN [None]
